FAERS Safety Report 8872960 (Version 1)
Quarter: 2012Q4

REPORT INFORMATION
  Report Type: Report from Study
  Country: DE (occurrence: DE)
  Receive Date: 20121030
  Receipt Date: 20121030
  Transmission Date: 20130627
  Serious: Yes (Hospitalization)
  Sender: FDA-Public Use
  Company Number: DE-ROCHE-1150563

PATIENT
  Age: 49 Year
  Sex: Male
  Weight: 79 kg

DRUGS (3)
  1. PEG-INTERFERON ALFA 2A [Suspect]
     Indication: HEPATITIS C
     Dosage: 28/sep/2012 last dose prior to event.
     Route: 058
     Dates: start: 20120921
  2. RIBAVIRIN [Suspect]
     Indication: HEPATITIS C
     Dosage: last dose prior to event on 2/oct/2012
     Route: 048
     Dates: start: 20120921
  3. TELAPREVIR [Suspect]
     Indication: HEPATITIS C
     Dosage: last dose prior to event on 2/oct/2012
     Route: 048
     Dates: start: 20120921

REACTIONS (2)
  - Headache [Recovered/Resolved]
  - Haemolysis [Recovered/Resolved]
